FAERS Safety Report 8203457-3 (Version None)
Quarter: 2012Q1

REPORT INFORMATION
  Report Type: 
  Country: None (occurrence: None)
  Receive Date: 20120313
  Receipt Date: 20120302
  Transmission Date: 20120608
  Serious: Yes (Hospitalization, Other)
  Sender: FDA-Public Use
  Company Number: US-BIOGENIDEC-2010BI028389

PATIENT
  Age: 60 Year
  Sex: Female
  Weight: 56 kg

DRUGS (23)
  1. VERAPAMIL EXTENDED-RELEASE [Concomitant]
  2. CALCIUM [Concomitant]
  3. LUNESTA [Concomitant]
  4. AVONEX [Concomitant]
     Indication: MULTIPLE SCLEROSIS
     Route: 030
     Dates: start: 20010409
  5. ALPRAZOLAM [Concomitant]
     Indication: ANXIETY
     Route: 048
     Dates: start: 20100831, end: 20101024
  6. LYRICA [Concomitant]
  7. PROVIGIL [Concomitant]
  8. CYMBALTA [Concomitant]
     Indication: DEPRESSION
     Route: 048
     Dates: start: 20100825
  9. FENTANYL-100 [Concomitant]
     Route: 061
     Dates: start: 20100923
  10. BENICAR [Concomitant]
     Indication: HYPERTENSION
     Route: 048
     Dates: start: 20100826
  11. ACETAMINOPHEN [Concomitant]
  12. VITAMIN D [Concomitant]
  13. ALPRAZOLAM [Concomitant]
     Route: 048
     Dates: start: 20101103
  14. TYSABRI [Suspect]
     Indication: MULTIPLE SCLEROSIS
     Route: 042
     Dates: start: 20070920, end: 20100806
  15. RESTORIL [Concomitant]
  16. BACLOFEN [Concomitant]
     Dates: start: 20101103
  17. LORCET-HD [Concomitant]
     Indication: PAIN
     Dates: start: 20100830, end: 20101023
  18. PREMPRO [Concomitant]
  19. CYMBALTA [Concomitant]
     Indication: PAIN
     Route: 048
     Dates: start: 20100825
  20. FENTANYL-100 [Concomitant]
     Indication: PAIN
  21. ENABLEX [Concomitant]
  22. BACLOFEN [Concomitant]
     Indication: MUSCLE SPASTICITY
     Route: 048
     Dates: start: 20101014, end: 20101020
  23. EFFEXOR [Concomitant]
     Dates: start: 20101103

REACTIONS (4)
  - PROGRESSIVE MULTIFOCAL LEUKOENCEPHALOPATHY [None]
  - PNEUMONIA ASPIRATION [None]
  - URINARY TRACT INFECTION [None]
  - GRAND MAL CONVULSION [None]
